FAERS Safety Report 8770337 (Version 1)
Quarter: 2012Q4

REPORT INFORMATION
  Report Type: 
  Country: US (occurrence: US)
  Receive Date: 20120906
  Receipt Date: 20120906
  Transmission Date: 20130627
  Serious: Yes (Other)
  Sender: FDA-Public Use
  Company Number: US-ASTRAZENECA-2012SE65561

PATIENT
  Age: 74 Year
  Sex: Male
  Weight: 106.6 kg

DRUGS (15)
  1. ATENOLOL [Suspect]
     Route: 048
  2. LISINOPRIL [Suspect]
     Route: 048
  3. OMEPRAZOLE [Suspect]
     Route: 048
  4. CITALOPRAM [Concomitant]
     Route: 048
  5. FLONASE/ACTUATION NASAL SUSPENSION [Concomitant]
     Dosage: 50 MCG, TWO SPRAYS IN EACH NOSTRIL EVERY DAY
     Route: 045
  6. ASPIRIN [Concomitant]
     Route: 048
  7. SIMVASTATIN [Concomitant]
     Route: 048
  8. MODAFINIL [Concomitant]
     Dosage: EVERY DAY
     Route: 048
  9. INSULIN ASPART [Concomitant]
     Dosage: 100 UNIT/ML, 80 UNITS, EVERY DAY
     Route: 058
  10. COLECALCIFEROL [Concomitant]
     Dosage: 2000 UNIT CAPSULE, 1 CAPSULE, EVERY DAY
     Route: 048
  11. CYANOCOBALAMIN [Concomitant]
     Route: 048
  12. BIMATOPROST [Concomitant]
     Dosage: 0.03 PERCENT, 1 DROP, AT BEDTIME
  13. PYRIDOXINE [Concomitant]
     Route: 048
  14. GLUCAGON [Concomitant]
     Indication: HYPOGLYCAEMIA
  15. ECONAZOLE NITRATE [Concomitant]
     Dosage: 1 PERCENT, 1 APPLICATION TO AFFECTED AREA TWICE A DAY
     Route: 061

REACTIONS (18)
  - Supraventricular extrasystoles [Unknown]
  - Glaucoma [Unknown]
  - Blindness [Unknown]
  - Coronary artery disease [Unknown]
  - Hyperlipidaemia [Unknown]
  - Hypertension [Unknown]
  - Inguinal hernia [Unknown]
  - Neck mass [Unknown]
  - Obesity [Unknown]
  - Malaise [Unknown]
  - Peripheral arterial occlusive disease [Unknown]
  - Sleep apnoea syndrome [Unknown]
  - Diabetic eye disease [Unknown]
  - Ventricular arrhythmia [Unknown]
  - Dyspnoea [Unknown]
  - Fatigue [Unknown]
  - Depression [Unknown]
  - Dyspepsia [Unknown]
